FAERS Safety Report 5484873-X (Version None)
Quarter: 2007Q4

REPORT INFORMATION
  Report Type: 
  Country: None (occurrence: None)
  Receive Date: 20071010
  Receipt Date: 20071002
  Transmission Date: 20080405
  Serious: Yes (Death)
  Sender: FDA-Public Use
  Company Number: TAP2007Q01254

PATIENT
  Age: 81 Year
  Sex: Male

DRUGS (5)
  1. LUPRON DEPOT-4 [Suspect]
     Indication: PROSTATE CANCER
     Dosage: 30 MG, 1 IN 4 M, INTRAMUSCULAR
     Route: 030
     Dates: start: 20060605, end: 20070604
  2. SYNTHROID [Concomitant]
  3. FOSAMAX [Concomitant]
  4. CALCIUM + VIT D + MAGNESIUM           (CALCIUM D3 /01483701/) [Concomitant]
  5. XALATAN [Concomitant]

REACTIONS (1)
  - MULTIPLE MYELOMA [None]
